FAERS Safety Report 4409531-1 (Version None)
Quarter: 2004Q3

REPORT INFORMATION
  Report Type: 
  Country: None (occurrence: None)
  Receive Date: 20040723
  Receipt Date: 20040702
  Transmission Date: 20050211
  Serious: Yes (Hospitalization)
  Sender: FDA-Public Use
  Company Number: CH-JNJFOC-20040700547

PATIENT
  Age: 63 Year
  Sex: Female

DRUGS (1)
  1. HALDOL [Suspect]
     Indication: DELIRIUM
     Dosage: ORAL
     Route: 048
     Dates: start: 19980101, end: 19990101

REACTIONS (5)
  - ABDOMINAL PAIN [None]
  - DIARRHOEA [None]
  - FIXED ERUPTION [None]
  - PYREXIA [None]
  - SKIN LESION [None]
